FAERS Safety Report 9044115 (Version 1)
Quarter: 2013Q1

REPORT INFORMATION
  Report Type: Spontaneous
  Country: FR (occurrence: FR)
  Receive Date: 20130130
  Receipt Date: 20130130
  Transmission Date: 20140127
  Serious: Yes (Other)
  Sender: FDA-Public Use
  Company Number: FR-ALLERGAN-1300672US

PATIENT
  Age: 90 Year
  Sex: Female

DRUGS (3)
  1. OZURDEX [Suspect]
     Indication: RETINAL VEIN OCCLUSION
     Dosage: 0.7 MG, SINGLE
     Route: 047
     Dates: start: 20121023, end: 20121023
  2. OZURDEX [Suspect]
     Indication: RETINAL VEIN OCCLUSION
     Dosage: 0.7 MG, SINGLE
     Dates: start: 201206, end: 201206
  3. LUMIGAN SOLUTION 0.01% [Concomitant]
     Indication: GLAUCOMA
     Dosage: UNK
     Route: 047
     Dates: start: 2008

REACTIONS (2)
  - Vitreous haemorrhage [Unknown]
  - Endophthalmitis [Unknown]
